FAERS Safety Report 7445289-X (Version None)
Quarter: 2011Q2

REPORT INFORMATION
  Report Type: 
  Country: None (occurrence: None)
  Receive Date: 20110429
  Receipt Date: 20110419
  Transmission Date: 20111010
  Serious: Yes (Other)
  Sender: FDA-Public Use
  Company Number: RU-BAYER-2011-034605

PATIENT
  Age: 54 Year
  Sex: Female

DRUGS (1)
  1. MIRENA [Suspect]
     Indication: ADENOMYOSIS
     Dosage: UNK
     Route: 015
     Dates: start: 20090101

REACTIONS (1)
  - BREAST CANCER STAGE III [None]
